FAERS Safety Report 23082378 (Version 1)
Quarter: 2023Q4

REPORT INFORMATION
  Report Type: Spontaneous
  Country: US (occurrence: US)
  Receive Date: 20231019
  Receipt Date: 20231019
  Transmission Date: 20240110
  Serious: No
  Sender: FDA-Public Use
  Company Number: US-TEVA-2023-US-2932537

PATIENT
  Age: 57 Year
  Sex: Female

DRUGS (3)
  1. VERAPAMIL [Suspect]
     Active Substance: VERAPAMIL HYDROCHLORIDE
     Indication: Arrhythmia
     Dosage: 160 MILLIGRAM DAILY;
     Route: 065
  2. FLECAINIDE [Concomitant]
     Active Substance: FLECAINIDE
     Indication: Product used for unknown indication
     Route: 065
  3. MONTELUKAST [Concomitant]
     Active Substance: MONTELUKAST SODIUM
     Indication: Product used for unknown indication
     Route: 065
     Dates: start: 202309

REACTIONS (12)
  - Hypersensitivity [Unknown]
  - Rash macular [Unknown]
  - Pruritus [Unknown]
  - Pharyngeal erythema [Unknown]
  - Tongue erythema [Unknown]
  - Throat irritation [Unknown]
  - Stomatitis [Unknown]
  - Glossodynia [Unknown]
  - Oropharyngeal pain [Unknown]
  - Asthma [Unknown]
  - Cough [Unknown]
  - Dyspnoea [Unknown]

NARRATIVE: CASE EVENT DATE: 20230919
